FAERS Safety Report 5947557-7 (Version None)
Quarter: 2008Q4

REPORT INFORMATION
  Report Type: 
  Country: None (occurrence: None)
  Receive Date: 20081110
  Receipt Date: 20081104
  Transmission Date: 20090506
  Serious: Yes (Life-Threatening)
  Sender: FDA-Public Use
  Company Number: PHBS2008US06219

PATIENT
  Age: 17 Year
  Sex: Male

DRUGS (2)
  1. METHYLPHENIDATE HCL [Suspect]
     Indication: ATTENTION DEFICIT/HYPERACTIVITY DISORDER
     Dosage: 18 MG/DAY
  2. METHYLPHENIDATE HCL [Suspect]
     Dosage: 36 MG/DAY

REACTIONS (19)
  - ANOXIC ENCEPHALOPATHY [None]
  - BLOOD CREATINE PHOSPHOKINASE MB INCREASED [None]
  - BLOOD PH DECREASED [None]
  - BLOOD PRESSURE INCREASED [None]
  - CARBON DIOXIDE INCREASED [None]
  - CARDIAC ARREST [None]
  - COMA [None]
  - CONVULSION [None]
  - EJECTION FRACTION [None]
  - ENCEPHALOPATHY [None]
  - HEART RATE IRREGULAR [None]
  - HIGH DENSITY LIPOPROTEIN INCREASED [None]
  - HYPOKINESIA [None]
  - LOW DENSITY LIPOPROTEIN ABNORMAL [None]
  - MYOGLOBIN BLOOD INCREASED [None]
  - PERIPHERAL CIRCULATORY FAILURE [None]
  - PULSE ABSENT [None]
  - UNRESPONSIVE TO STIMULI [None]
  - VENTRICULAR FIBRILLATION [None]
